FAERS Safety Report 23102444 (Version 2)
Quarter: 2023Q4

REPORT INFORMATION
  Report Type: Spontaneous
  Country: DE (occurrence: DE)
  Receive Date: 20231025
  Receipt Date: 20231026
  Transmission Date: 20240110
  Serious: Yes (Other)
  Sender: FDA-Public Use
  Company Number: DE-BoehringerIngelheim-2023-BI-267653

PATIENT
  Age: 68 Year
  Sex: Female
  Weight: 102 kg

DRUGS (1)
  1. GILOTRIF [Suspect]
     Active Substance: AFATINIB
     Indication: Lung neoplasm malignant
     Dates: start: 20230910, end: 20231010

REACTIONS (3)
  - Pulmonary embolism [Unknown]
  - Vascular occlusion [Unknown]
  - Vascular occlusion [Unknown]

NARRATIVE: CASE EVENT DATE: 20230101
